FAERS Safety Report 20099410 (Version 2)
Quarter: 2021Q4

REPORT INFORMATION
  Report Type: Spontaneous
  Country: DE (occurrence: DE)
  Receive Date: 20211122
  Receipt Date: 20211122
  Transmission Date: 20220303
  Serious: Yes (Other)
  Sender: FDA-Public Use
  Company Number: DE-Santen Korea-2021-DEU-010895

PATIENT
  Age: 5 Decade
  Sex: Female

DRUGS (2)
  1. CYCLOSPORINE [Suspect]
     Active Substance: CYCLOSPORINE
     Indication: Dry eye
     Dosage: 1 DROP ONCE DAILY IN EACH EYE IN THE EVENING
     Route: 047
     Dates: start: 202104, end: 202111
  2. CYCLOSPORINE [Suspect]
     Active Substance: CYCLOSPORINE
     Dosage: 1 DROP ONCE DAILY IN EACH EYE IN THE EVENING
     Route: 047
     Dates: start: 20211117

REACTIONS (2)
  - Pericardial effusion [Not Recovered/Not Resolved]
  - Eye irritation [Unknown]

NARRATIVE: CASE EVENT DATE: 20210101
